FAERS Safety Report 5849844-X (Version None)
Quarter: 2008Q3

REPORT INFORMATION
  Report Type: 
  Country: None (occurrence: None)
  Receive Date: 20080818
  Receipt Date: 20080818
  Transmission Date: 20090109
  Serious: Yes (Other)
  Sender: FDA-Public Use
  Company Number: None

PATIENT
  Sex: Male
  Weight: 108.8633 kg

DRUGS (2)
  1. TOPAMAX [Suspect]
     Indication: DIZZINESS
     Dosage: 25MG 1 DAILY PO
     Route: 048
     Dates: start: 20080709, end: 20080717
  2. TOPAMAX [Suspect]
     Indication: HEADACHE
     Dosage: 25MG 1 DAILY PO
     Route: 048
     Dates: start: 20080709, end: 20080717

REACTIONS (10)
  - ABASIA [None]
  - ACTIVITIES OF DAILY LIVING IMPAIRED [None]
  - BACK PAIN [None]
  - GROIN PAIN [None]
  - MUSCULOSKELETAL PAIN [None]
  - PAIN IN EXTREMITY [None]
  - PAIN OF SKIN [None]
  - PARAESTHESIA [None]
  - POOR QUALITY SLEEP [None]
  - PRURITUS [None]
